FAERS Safety Report 4660156-2 (Version None)
Quarter: 2005Q2

REPORT INFORMATION
  Report Type: 
  Country: None (occurrence: None)
  Receive Date: 20050427
  Receipt Date: 20050304
  Transmission Date: 20051028
  Serious: No
  Sender: FDA-Public Use
  Company Number: 212888

PATIENT
  Age: 73 Year
  Sex: Female
  Weight: 91.4 kg

DRUGS (10)
  1. XOLAIR [Suspect]
     Indication: ASTHMA
     Dosage: 375 MG, QW, SUBCUTANEOUS
     Route: 058
     Dates: start: 20040927
  2. SEREVENT [Concomitant]
  3. FLOVENT [Concomitant]
  4. ALBUTEROL (ALBUTEROL, ALBUTEROL SULFATE) [Concomitant]
  5. SYNTHROID [Concomitant]
  6. CALCIUM GLUCONATE [Concomitant]
  7. ZANTAC [Concomitant]
  8. PROTONIX [Concomitant]
  9. ALLEGRA [Concomitant]
  10. PREDNISONE [Concomitant]

REACTIONS (2)
  - ASTHMA [None]
  - SWELLING FACE [None]
